FAERS Safety Report 24107183 (Version 1)
Quarter: 2024Q3

REPORT INFORMATION
  Report Type: Spontaneous
  Country: DE (occurrence: DE)
  Receive Date: 20240718
  Receipt Date: 20240718
  Transmission Date: 20241017
  Serious: Yes (Death)
  Sender: NOVO NORDISK
  Company Number: DE-NOVOPROD-1253871

PATIENT
  Age: 68 Year
  Sex: Male

DRUGS (2)
  1. INSULIN HUMAN [Suspect]
     Active Substance: INSULIN HUMAN
     Indication: Product used for unknown indication
     Dosage: UNK
  2. METOPROLOL [Suspect]
     Active Substance: METOPROLOL
     Indication: Product used for unknown indication
     Dosage: 0.4 MG/ML

REACTIONS (4)
  - Completed suicide [Fatal]
  - Pulmonary embolism [Fatal]
  - Hypoglycaemia [Fatal]
  - Overdose [Fatal]
